FAERS Safety Report 9553102 (Version 1)
Quarter: 2013Q2

REPORT INFORMATION
  Report Type: Spontaneous
  Country: US (occurrence: None)
  Receive Date: 20130606
  Receipt Date: 20130606
  Transmission Date: 20140414
  Serious: Yes (Other)
  Sender: FDA-Public Use
  Company Number: 2013PROUSA02667

PATIENT
  Age: 74 Year
  Sex: Male
  Weight: 86.2 kg

DRUGS (3)
  1. PROVENGE [Suspect]
     Indication: PROSTATE CANCER METASTATIC
     Dosage: 250 ML, SINGLE, INTRAVENOUS
     Route: 042
     Dates: start: 20130208, end: 20130208
  2. ZYRTEC (CETIRIZINE HYDROCHLORIDE) [Concomitant]
  3. NYSTATIN (NYSTATIN) [Concomitant]

REACTIONS (2)
  - Neutrophil count decreased [None]
  - Sinusitis [None]
